FAERS Safety Report 21055351 (Version 1)
Quarter: 2022Q3

REPORT INFORMATION
  Report Type: Spontaneous
  Country: SA (occurrence: SA)
  Receive Date: 20220708
  Receipt Date: 20220708
  Transmission Date: 20221026
  Serious: Yes (Death, Hospitalization, Other)
  Sender: FDA-Public Use
  Company Number: SA-SUN PHARMACEUTICAL INDUSTRIES LTD-2022RR-342680

PATIENT
  Age: 48 Year
  Sex: Female

DRUGS (3)
  1. ENTECAVIR [Suspect]
     Active Substance: ENTECAVIR
     Indication: Prophylaxis
     Dosage: 0.5 MILLIGRAM, QD
     Route: 048
  2. DOXORUBICIN [Suspect]
     Active Substance: DOXORUBICIN
     Indication: Breast cancer
     Dosage: 60 MILLIGRAM/SQ. METER, FOUR CYCLES
     Route: 042
  3. CYCLOPHOSPHAMIDE [Suspect]
     Active Substance: CYCLOPHOSPHAMIDE
     Indication: Breast cancer
     Dosage: 600 MILLIGRAM/SQ. METER, FOUR CYCLES
     Route: 042

REACTIONS (3)
  - Hepatitis B reactivation [Fatal]
  - Acute hepatic failure [Fatal]
  - Drug ineffective [Unknown]
